FAERS Safety Report 7366730-7 (Version None)
Quarter: 2011Q1

REPORT INFORMATION
  Report Type: 
  Country: None (occurrence: None)
  Receive Date: 20110322
  Receipt Date: 20110315
  Transmission Date: 20110831
  Serious: Yes (Hospitalization, Other)
  Sender: FDA-Public Use
  Company Number: JP-ROCHE-691042

PATIENT
  Sex: Female
  Weight: 49 kg

DRUGS (18)
  1. TOCILIZUMAB [Suspect]
     Indication: RHEUMATOID ARTHRITIS
     Dosage: FORM REPORTED AS INJECTION
     Route: 041
     Dates: start: 20090514, end: 20090514
  2. TOCILIZUMAB [Suspect]
     Route: 041
     Dates: start: 20100215, end: 20100215
  3. TOCILIZUMAB [Suspect]
     Route: 041
     Dates: start: 20100315, end: 20100315
  4. INFLIXIMAB [Suspect]
     Indication: RHEUMATOID ARTHRITIS
     Route: 042
     Dates: start: 20080313, end: 20080619
  5. ETANERCEPT [Suspect]
     Indication: RHEUMATOID ARTHRITIS
     Route: 058
     Dates: start: 20090123, end: 20090428
  6. TOCILIZUMAB [Suspect]
     Route: 041
     Dates: start: 20091124, end: 20091124
  7. TOCILIZUMAB [Suspect]
     Dosage: FORM REPORTED AS INJECTION.
     Route: 041
     Dates: start: 20090929, end: 20090929
  8. TOCILIZUMAB [Suspect]
     Dosage: FORM REPORTED AS INJECTION.
     Route: 041
     Dates: start: 20091027, end: 20091027
  9. CYTOTEC [Concomitant]
     Route: 048
  10. FELBINAC [Concomitant]
     Dosage: FORM REPORTED AS TAPE
     Route: 061
  11. TOCILIZUMAB [Suspect]
     Dosage: FORM REPORTED AS INJECTION.
     Route: 041
     Dates: start: 20090611, end: 20090611
  12. TOCILIZUMAB [Suspect]
     Dosage: FORM REPORTED AS INJECTION.
     Route: 041
     Dates: start: 20090804, end: 20090804
  13. ADALIMUMAB [Suspect]
     Indication: RHEUMATOID ARTHRITIS
     Route: 058
     Dates: start: 20080807, end: 20090108
  14. TOCILIZUMAB [Suspect]
     Dosage: FORM REPORTED AS INJECTION.
     Route: 041
     Dates: start: 20090901, end: 20090901
  15. TOCILIZUMAB [Suspect]
     Route: 041
     Dates: start: 20100126, end: 20100126
  16. METHOTREXATE [Suspect]
     Indication: RHEUMATOID ARTHRITIS
     Route: 048
     Dates: end: 20081106
  17. VOLTAREN [Concomitant]
     Dosage: FOR REPORTED AS SUSTAINED RELEASE CAPSULE
     Route: 048
  18. TOCILIZUMAB [Suspect]
     Dosage: FORM REPORTED AS INJECTION.
     Route: 041
     Dates: start: 20090707, end: 20090707

REACTIONS (4)
  - KNEE ARTHROPLASTY [None]
  - CARDIAC FAILURE CHRONIC [None]
  - PNEUMONIA [None]
  - C-REACTIVE PROTEIN INCREASED [None]
